FAERS Safety Report 5962117-X (Version None)
Quarter: 2008Q4

REPORT INFORMATION
  Report Type: 
  Country: None (occurrence: None)
  Receive Date: 20081121
  Receipt Date: 20081112
  Transmission Date: 20090506
  Serious: Yes (Hospitalization)
  Sender: FDA-Public Use
  Company Number: PHHO2008DE13526

PATIENT
  Sex: Male

DRUGS (1)
  1. TASIGNA [Suspect]
     Indication: CHRONIC MYELOID LEUKAEMIA
     Dosage: 400 MG, BID
     Route: 048
     Dates: start: 20060829, end: 20081113

REACTIONS (5)
  - APHASIA [None]
  - CEREBROVASCULAR STENOSIS [None]
  - HEMIPARESIS [None]
  - LUPUS-LIKE SYNDROME [None]
  - VASCULITIS CEREBRAL [None]
